FAERS Safety Report 7815932-1 (Version None)
Quarter: 2011Q4

REPORT INFORMATION
  Report Type: 
  Country: None (occurrence: None)
  Receive Date: 20111014
  Receipt Date: 20110930
  Transmission Date: 20120403
  Serious: Yes (Death, Congenital Anomaly, Other)
  Sender: FDA-Public Use
  Company Number: JP-ROCHE-781431

PATIENT
  Sex: Female
  Weight: 45 kg

DRUGS (7)
  1. ACTEMRA [Suspect]
     Indication: RHEUMATOID ARTHRITIS
     Route: 041
     Dates: start: 20110422, end: 20110501
  2. ENBREL [Suspect]
     Indication: RHEUMATOID ARTHRITIS
     Route: 058
     Dates: start: 20101018, end: 20110422
  3. ETHAMBUTOL HYDROCHLORIDE [Concomitant]
  4. ALENDRONATE SODIUM [Concomitant]
     Route: 048
  5. ACECOL [Concomitant]
     Route: 050
  6. AMLODIPINE [Concomitant]
     Route: 050
  7. ALENDRONATE SODIUM [Concomitant]
     Route: 048

REACTIONS (4)
  - PNEUMOCOCCAL SEPSIS [None]
  - DISSEMINATED INTRAVASCULAR COAGULATION [None]
  - SEPTIC SHOCK [None]
  - CELLULITIS [None]
